FAERS Safety Report 7788308-3 (Version None)
Quarter: 2011Q3

REPORT INFORMATION
  Report Type: 
  Country: None (occurrence: None)
  Receive Date: 20110927
  Receipt Date: 20110914
  Transmission Date: 20111222
  Serious: Yes (Death)
  Sender: FDA-Public Use
  Company Number: 1000024072

PATIENT
  Age: 85 Year
  Sex: Female

DRUGS (3)
  1. DEPAKOTE [Concomitant]
  2. MEMANTINE HYDROCHLORIDE [Suspect]
     Dosage: ORAL
     Route: 048
  3. ANTIPSYCHOTICS (ANTIPSYCHOTICS)(ANTIPSYCHOTICS) [Concomitant]

REACTIONS (6)
  - PHLEBITIS [None]
  - SOMNOLENCE [None]
  - VERTIGO [None]
  - PULMONARY EMBOLISM [None]
  - FALL [None]
  - COGNITIVE DISORDER [None]
